FAERS Safety Report 21073003 (Version 1)
Quarter: 2022Q3

REPORT INFORMATION
  Report Type: Spontaneous
  Country: US (occurrence: US)
  Receive Date: 20220712
  Receipt Date: 20220712
  Transmission Date: 20221026
  Serious: No
  Sender: FDA-Public Use
  Company Number: US-SA-SAC20220707001469

PATIENT
  Sex: Female
  Weight: 48.9 kg

DRUGS (8)
  1. DUPIXENT [Suspect]
     Active Substance: DUPILUMAB
     Indication: Dermatitis atopic
     Dosage: 200 MG, QOW
     Route: 058
  2. ALBUTEROL SULFATE [Concomitant]
     Active Substance: ALBUTEROL SULFATE
  3. RINVOQ [Concomitant]
     Active Substance: UPADACITINIB
  4. CERAVE ECZEMA CREAMY OIL [Concomitant]
  5. CLOBETASOL PROPIONATE [Concomitant]
     Active Substance: CLOBETASOL PROPIONATE
  6. EUCRISA [Concomitant]
     Active Substance: CRISABOROLE
  7. TACROLIMUS [Concomitant]
     Active Substance: TACROLIMUS
  8. VITAMINS [Concomitant]
     Active Substance: VITAMINS

REACTIONS (1)
  - Eczema [Unknown]
